FAERS Safety Report 11620092 (Version 2)
Quarter: 2015Q4

REPORT INFORMATION
  Report Type: Spontaneous
  Country: US (occurrence: US)
  Receive Date: 20151012
  Receipt Date: 20151015
  Transmission Date: 20160304
  Serious: No
  Sender: FDA-Public Use
  Company Number: US-SA-2015SA078222

PATIENT
  Age: 71 Year
  Sex: Male

DRUGS (1)
  1. AFREZZA [Suspect]
     Active Substance: INSULIN HUMAN
     Indication: TYPE 2 DIABETES MELLITUS
     Dosage: CARTRIDGE, DOSAGE STRENGTH: 4 UNITS
     Route: 055

REACTIONS (2)
  - Drug ineffective [Unknown]
  - Blood glucose increased [Unknown]
